FAERS Safety Report 7080909-3 (Version None)
Quarter: 2010Q4

REPORT INFORMATION
  Report Type: 
  Country: None (occurrence: None)
  Receive Date: 20101103
  Receipt Date: 20101025
  Transmission Date: 20110411
  Serious: Yes (Hospitalization)
  Sender: FDA-Public Use
  Company Number: KR-ASTRAZENECA-2010SE50392

PATIENT
  Age: 28109 Day
  Sex: Male

DRUGS (13)
  1. CRESTOR [Suspect]
     Indication: HYPERLIPIDAEMIA
     Route: 048
     Dates: start: 20050113
  2. AMARYL [Concomitant]
  3. ASPIRIN [Concomitant]
  4. BALUNA-S [Concomitant]
  5. DIABES [Concomitant]
  6. DILATREND [Concomitant]
  7. GLUCOBAY [Concomitant]
  8. ISOSORBIDE DINITRATE [Concomitant]
  9. MICARDIS [Concomitant]
  10. PLAVIX [Concomitant]
  11. NITROGLYCERIN [Concomitant]
  12. SIGMART [Concomitant]
  13. TALION [Concomitant]

REACTIONS (1)
  - CHEST PAIN [None]
